FAERS Safety Report 21710597 (Version 1)
Quarter: 2022Q4

REPORT INFORMATION
  Report Type: Report from Study
  Country: US (occurrence: US)
  Receive Date: 20221212
  Receipt Date: 20221212
  Transmission Date: 20230113
  Serious: No
  Sender: FDA-Public Use
  Company Number: US-ABBVIE-22K-163-4309093-00

PATIENT
  Sex: Female

DRUGS (3)
  1. HUMIRA [Suspect]
     Active Substance: ADALIMUMAB
     Indication: Crohn^s disease
     Dosage: CITRATE FREE, FORM STRENGTH: 40 MILLIGRAM
     Route: 058
  2. HUMIRA [Suspect]
     Active Substance: ADALIMUMAB
     Route: 058
  3. JANSSEN COVID-19 VACCINE [Concomitant]
     Active Substance: AD26.COV2.S
     Indication: COVID-19 immunisation
     Dosage: TIME INTERVAL: 1 TOTAL
     Route: 030

REACTIONS (5)
  - Vitamin B12 deficiency [Recovering/Resolving]
  - Iron deficiency [Recovering/Resolving]
  - Crohn^s disease [Recovering/Resolving]
  - Headache [Recovering/Resolving]
  - Feeling abnormal [Unknown]

NARRATIVE: CASE EVENT DATE: 20220101
